FAERS Safety Report 4389301-3 (Version None)
Quarter: 2004Q3

REPORT INFORMATION
  Report Type: 
  Country: None (occurrence: None)
  Receive Date: 20040702
  Receipt Date: 20040622
  Transmission Date: 20050211
  Serious: Yes (Hospitalization)
  Sender: FDA-Public Use
  Company Number: FR-AMGEN-US081661

PATIENT
  Age: 66 Year
  Sex: Male

DRUGS (5)
  1. ENBREL [Suspect]
     Indication: RHEUMATOID ARTHRITIS
     Dates: start: 20031201
  2. MICARDIS [Suspect]
     Dates: start: 20040518
  3. PREDNISONE [Concomitant]
  4. CORDARONE [Concomitant]
  5. PREVISCAN [Concomitant]

REACTIONS (4)
  - CONDITION AGGRAVATED [None]
  - DRUG INTERACTION [None]
  - PYREXIA [None]
  - RHEUMATOID ARTHRITIS [None]
